FAERS Safety Report 6944207-8 (Version None)
Quarter: 2010Q3

REPORT INFORMATION
  Report Type: 
  Country: None (occurrence: None)
  Receive Date: 20100827
  Receipt Date: 20100818
  Transmission Date: 20110219
  Serious: No
  Sender: FDA-Public Use
  Company Number: US-BIOGENIDEC-2010BI029003

PATIENT
  Sex: Female

DRUGS (1)
  1. TYSABRI [Suspect]
     Indication: MULTIPLE SCLEROSIS
     Route: 042
     Dates: start: 20071101

REACTIONS (15)
  - BALANCE DISORDER [None]
  - BRONCHITIS [None]
  - CHEST DISCOMFORT [None]
  - HAEMOPTYSIS [None]
  - HYPOAESTHESIA [None]
  - LUNG DISORDER [None]
  - MUSCLE SPASMS [None]
  - PAIN IN EXTREMITY [None]
  - PARAESTHESIA [None]
  - PERONEAL NERVE PALSY [None]
  - PHOTOSENSITIVITY REACTION [None]
  - PRODUCTIVE COUGH [None]
  - PYREXIA [None]
  - TEMPERATURE INTOLERANCE [None]
  - VISUAL IMPAIRMENT [None]
